FAERS Safety Report 25286606 (Version 5)
Quarter: 2025Q2

REPORT INFORMATION
  Report Type: Report from Study
  Country: US (occurrence: US)
  Receive Date: 20250509
  Receipt Date: 20250618
  Transmission Date: 20250717
  Serious: Yes (Hospitalization, Other)
  Sender: UCB
  Company Number: US-UCBSA-2025027100

PATIENT
  Age: 16 Year
  Sex: Male
  Weight: 66.3 kg

DRUGS (4)
  1. FINTEPLA [Suspect]
     Active Substance: FENFLURAMINE
     Indication: Lennox-Gastaut syndrome
     Dosage: 3 MILLILITER, 2X/DAY (BID)
     Route: 048
     Dates: start: 20200820
  2. FINTEPLA [Suspect]
     Active Substance: FENFLURAMINE
     Indication: Severe myoclonic epilepsy of infancy
     Dates: start: 20221220
  3. FINTEPLA [Suspect]
     Active Substance: FENFLURAMINE
     Dosage: 3 MILLILITER, 2X/DAY (BID)
     Route: 048
  4. FINTEPLA [Suspect]
     Active Substance: FENFLURAMINE

REACTIONS (5)
  - Hypoxia [Recovered/Resolved]
  - Seizure [Recovered/Resolved]
  - Weight decreased [Recovered/Resolved]
  - Hospitalisation [Recovered/Resolved]
  - Mitral valve calcification [Unknown]

NARRATIVE: CASE EVENT DATE: 20221220
